FAERS Safety Report 16587785 (Version 3)
Quarter: 2019Q3

REPORT INFORMATION
  Report Type: Spontaneous
  Country: US (occurrence: US)
  Receive Date: 20190717
  Receipt Date: 20190724
  Transmission Date: 20191004
  Serious: Yes (Death, Other)
  Sender: FDA-Public Use
  Company Number: US-PFIZER INC-2019297839

PATIENT
  Age: 53 Year
  Sex: Female

DRUGS (3)
  1. CYCLOPHOSPHAMIDE. [Suspect]
     Active Substance: CYCLOPHOSPHAMIDE
     Indication: PARAGANGLION NEOPLASM
     Dosage: UNK, CYCLIC (ABORTED AFTER THE 10TH CYCLE)
     Dates: start: 201511, end: 201605
  2. DACARBAZINE. [Suspect]
     Active Substance: DACARBAZINE
     Indication: PARAGANGLION NEOPLASM
     Dosage: UNK, CYCLIC (ABORTED AFTER THE 10TH CYCLE)
     Dates: start: 201511, end: 201605
  3. VINCRISTINE SULFATE. [Suspect]
     Active Substance: VINCRISTINE SULFATE
     Indication: PARAGANGLION NEOPLASM
     Dosage: UNK, CYCLIC (ABORTED AFTER THE 10TH CYCLE)
     Dates: start: 201511, end: 201605

REACTIONS (4)
  - Pancytopenia [Unknown]
  - Myelodysplastic syndrome [Unknown]
  - Drug ineffective [Unknown]
  - Second primary malignancy [Unknown]

NARRATIVE: CASE EVENT DATE: 201605
